FAERS Safety Report 4278351-3 (Version None)
Quarter: 2004Q1

REPORT INFORMATION
  Report Type: 
  Country: None (occurrence: None)
  Receive Date: 20040121
  Receipt Date: 20040121
  Transmission Date: 20041129
  Serious: Yes (Other)
  Sender: FDA-Public Use
  Company Number: None

PATIENT
  Sex: Female
  Weight: 58.0604 kg

DRUGS (1)
  1. FLUDROCORTISONE ACETATE [Suspect]
     Indication: HYPOTENSION
     Dosage: 1 PO DAILY
     Route: 048

REACTIONS (6)
  - BURNING SENSATION [None]
  - FATIGUE [None]
  - PAIN IN EXTREMITY [None]
  - PHARMACEUTICAL PRODUCT COMPLAINT [None]
  - SENSATION OF HEAVINESS [None]
  - SLEEP DISORDER [None]
